FAERS Safety Report 10184794 (Version 1)
Quarter: 2014Q2

REPORT INFORMATION
  Report Type: Report from Study
  Country: US (occurrence: US)
  Receive Date: 20140521
  Receipt Date: 20140521
  Transmission Date: 20141212
  Serious: Yes (Death)
  Sender: FDA-Public Use
  Company Number: PHEH2014US010293

PATIENT
  Sex: Male

DRUGS (2)
  1. SIGNIFOR [Suspect]
     Indication: NEUROENDOCRINE TUMOUR
     Dosage: 600 UG, BID
     Route: 058
     Dates: start: 20131030
  2. SIGNIFOR [Suspect]
     Indication: OFF LABEL USE

REACTIONS (1)
  - Death [Fatal]
